FAERS Safety Report 6213195-4 (Version None)
Quarter: 2009Q2

REPORT INFORMATION
  Report Type: 
  Country: None (occurrence: None)
  Receive Date: 20090602
  Receipt Date: 20090602
  Transmission Date: 20091009
  Serious: Yes (Other)
  Sender: FDA-Public Use
  Company Number: None

PATIENT
  Age: 80 Year
  Sex: Male
  Weight: 90.2658 kg

DRUGS (1)
  1. REGLAN [Suspect]
     Indication: ABDOMINAL DISCOMFORT
     Dosage: MONTHS
     Dates: start: 20080222, end: 20080505

REACTIONS (1)
  - DYSKINESIA [None]
